FAERS Safety Report 9856755 (Version 1)
Quarter: 2014Q1

REPORT INFORMATION
  Report Type: Spontaneous
  Country: IT (occurrence: IT)
  Receive Date: 20140130
  Receipt Date: 20140130
  Transmission Date: 20141002
  Serious: Yes (Other)
  Sender: FDA-Public Use
  Company Number: IT-SA-2014SA011298

PATIENT
  Age: 54 Year
  Sex: Female

DRUGS (2)
  1. LEFLUNOMIDE [Suspect]
     Indication: PSORIATIC ARTHROPATHY
     Route: 065
  2. CORTICOSTEROID NOS [Concomitant]
     Indication: PSORIATIC ARTHROPATHY

REACTIONS (1)
  - Anaemia megaloblastic [Recovered/Resolved]
